FAERS Safety Report 8461115-4 (Version None)
Quarter: 2012Q2

REPORT INFORMATION
  Report Type: 
  Country: None (occurrence: None)
  Receive Date: 20120625
  Receipt Date: 20120615
  Transmission Date: 20120825
  Serious: No
  Sender: FDA-Public Use
  Company Number: US-PFIZER INC-2012144971

PATIENT
  Sex: Female
  Weight: 90.7 kg

DRUGS (1)
  1. SUTENT [Suspect]
     Indication: NEOPLASM MALIGNANT
     Dosage: 50 MG, DAILY
     Route: 048
     Dates: start: 20120501

REACTIONS (4)
  - SWOLLEN TONGUE [None]
  - AGEUSIA [None]
  - DYSGEUSIA [None]
  - RASH [None]
